FAERS Safety Report 7364557-3 (Version None)
Quarter: 2011Q1

REPORT INFORMATION
  Report Type: 
  Country: None (occurrence: None)
  Receive Date: 20110316
  Receipt Date: 20110316
  Transmission Date: 20110831
  Serious: No
  Sender: FDA-Public Use
  Company Number: None

PATIENT
  Age: 33 Year
  Sex: Male
  Weight: 73.0291 kg

DRUGS (1)
  1. CYCLOBENZAPRINE [Suspect]
     Indication: NECK PAIN
     Dosage: 5 MG 1 TABLET @ NIGHT
     Dates: start: 20110119, end: 20110128

REACTIONS (6)
  - FATIGUE [None]
  - NAUSEA [None]
  - DIZZINESS [None]
  - DRY MOUTH [None]
  - TACHYCARDIA [None]
  - ABDOMINAL PAIN [None]
